FAERS Safety Report 13792760 (Version 3)
Quarter: 2017Q3

REPORT INFORMATION
  Report Type: Spontaneous
  Country: JP (occurrence: JP)
  Receive Date: 20170726
  Receipt Date: 20170831
  Transmission Date: 20171127
  Serious: Yes (Death, Other)
  Sender: FDA-Public Use
  Company Number: JP-PFIZER INC-2017020820

PATIENT
  Age: 86 Year
  Sex: Male

DRUGS (2)
  1. SUTENT [Suspect]
     Active Substance: SUNITINIB MALATE
     Dosage: 50 MG, CYCLIC (2 WEEKS-ON AND 1 WEEK-OFF)
     Dates: start: 20170116
  2. SUTENT [Suspect]
     Active Substance: SUNITINIB MALATE
     Dosage: 37.5 MG, CYCLIC  (2-WEEKS- ON AND 1-WEEK-OFF SCHEDULE)
     Dates: start: 20170710

REACTIONS (8)
  - Pneumonia [Fatal]
  - Platelet count decreased [Unknown]
  - Pneumopericardium [Fatal]
  - Anal erosion [Recovered/Resolved]
  - Stomatitis [Fatal]
  - Anal ulcer [Unknown]
  - Fatigue [Unknown]
  - Feeding disorder [Fatal]

NARRATIVE: CASE EVENT DATE: 20170208
